FAERS Safety Report 9107819 (Version 2)
Quarter: 2013Q2

REPORT INFORMATION
  Report Type: Spontaneous
  Country: US (occurrence: US)
  Receive Date: 20130221
  Receipt Date: 20130520
  Transmission Date: 20140414
  Serious: Yes (Hospitalization)
  Sender: FDA-Public Use
  Company Number: US-BIOGENIDEC-2013BI016018

PATIENT
  Age: 70 Year
  Sex: Female

DRUGS (3)
  1. AVONEX [Suspect]
     Indication: MULTIPLE SCLEROSIS
     Route: 030
     Dates: start: 19981230
  2. AVONEX [Suspect]
     Indication: MULTIPLE SCLEROSIS
     Route: 030
     Dates: start: 19990107
  3. AVONEX [Suspect]
     Indication: MULTIPLE SCLEROSIS
     Route: 030
     Dates: start: 20030814

REACTIONS (6)
  - Overdose [Recovered/Resolved with Sequelae]
  - Gastric ulcer [Not Recovered/Not Resolved]
  - Confusional state [Recovered/Resolved]
  - Abdominal pain upper [Recovered/Resolved]
  - Gait disturbance [Not Recovered/Not Resolved]
  - Cataract [Unknown]
